FAERS Safety Report 16683168 (Version 2)
Quarter: 2019Q3

REPORT INFORMATION
  Report Type: Spontaneous
  Country: ES (occurrence: ES)
  Receive Date: 20190808
  Receipt Date: 20190812
  Transmission Date: 20191004
  Serious: Yes (Other)
  Sender: FDA-Public Use
  Company Number: ES-BAUSCH-BL-2019-022940

PATIENT
  Age: 60 Year
  Sex: Female

DRUGS (3)
  1. IMIQUIMOD CREAM [Suspect]
     Active Substance: IMIQUIMOD
     Indication: BASAL CELL CARCINOMA
     Dosage: ONE 250 MG SACHET TO EACH OF THE BCC LESIONS EVERY DAY AND THE REMAINING AMOUNT TO HER NECKLINE
     Route: 061
  2. IMIQUIMOD CREAM [Suspect]
     Active Substance: IMIQUIMOD
     Dosage: RESTARTED: 250 MG DAILY ON THREE DAYS PER WEEK TO THE BCC LESIONS ON PATIENT^S BACK
     Route: 061
  3. IMIQUIMOD CREAM [Suspect]
     Active Substance: IMIQUIMOD
     Dosage: 2-MONTH TREATMENT COURSE OF THE SECOND BBC LESION
     Route: 061

REACTIONS (1)
  - Pemphigus [Unknown]
